FAERS Safety Report 4516510-2 (Version None)
Quarter: 2004Q4

REPORT INFORMATION
  Report Type: 
  Country: None (occurrence: None)
  Receive Date: 20041027
  Receipt Date: 20040722
  Transmission Date: 20050328
  Serious: No
  Sender: FDA-Public Use
  Company Number: US084431

PATIENT
  Age: 63 Year
  Sex: Male

DRUGS (7)
  1. SENSIPAR [Suspect]
     Indication: HYPERPARATHYROIDISM SECONDARY
     Dosage: 60 MG, 1 IN 1 DAYS, PO
     Route: 048
     Dates: start: 20040601
  2. CLOPIDOGREL BISULFATE [Concomitant]
  3. ACETYLSALICYLIC ACID [Concomitant]
  4. SEVELAMER HCL [Concomitant]
  5. PHOSLO [Concomitant]
  6. EPOGEN [Concomitant]
  7. HEPARIN [Concomitant]

REACTIONS (2)
  - CONDITION AGGRAVATED [None]
  - VISUAL DISTURBANCE [None]
